FAERS Safety Report 10744174 (Version 1)
Quarter: 2015Q1

REPORT INFORMATION
  Report Type: Spontaneous
  Country: US (occurrence: None)
  Receive Date: 20150126
  Receipt Date: 20150126
  Transmission Date: 20150721
  Serious: Yes (Other)
  Sender: FDA-Public Use
  Company Number: 201501079

PATIENT
  Age: 47 Year
  Sex: Male
  Weight: 88.45 kg

DRUGS (3)
  1. TESTOPEL [Suspect]
     Active Substance: TESTOSTERONE
     Indication: BLOOD TESTOSTERONE DECREASED
     Dosage: 10 PELLETS
     Route: 058
     Dates: start: 201401
  2. GABAPENTIN. [Concomitant]
     Active Substance: GABAPENTIN
  3. CELEXA [Concomitant]
     Active Substance: CITALOPRAM HYDROBROMIDE

REACTIONS (3)
  - Device dislocation [None]
  - Implant site infection [None]
  - Overdose [None]

NARRATIVE: CASE EVENT DATE: 20150112
